FAERS Safety Report 24657155 (Version 1)
Quarter: 2024Q4

REPORT INFORMATION
  Report Type: Spontaneous
  Country: US (occurrence: US)
  Receive Date: 20241125
  Receipt Date: 20241125
  Transmission Date: 20250114
  Serious: Yes (Other)
  Sender: CHEPLAPHARM
  Company Number: US-ROCHE-10000128265

PATIENT
  Age: 63 Year
  Sex: Female

DRUGS (9)
  1. CAPECITABINE [Suspect]
     Active Substance: CAPECITABINE
     Indication: Rectal cancer
     Dosage: DAILY DOSE: 1000 MILLIGRAM
     Route: 048
  2. CAPECITABINE [Suspect]
     Active Substance: CAPECITABINE
     Indication: Liver disorder
     Dosage: DAILY DOSE: 1000 MILLIGRAM
     Route: 048
  3. AVASTIN [Suspect]
     Active Substance: BEVACIZUMAB
     Indication: Rectal cancer
     Dosage: STRENGTH : 25 MG/ML
     Route: 042
  4. AVASTIN [Suspect]
     Active Substance: BEVACIZUMAB
     Indication: Liver disorder
     Dosage: STRENGTH : 25 MG/ML
     Route: 042
  5. FLUOROURACIL\IRINOTECAN\LEUCOVORIN [Concomitant]
     Active Substance: FLUOROURACIL\IRINOTECAN\LEUCOVORIN
  6. FLUOROURACIL\LEUCOVORIN CALCIUM\OXALIPLATIN [Concomitant]
     Active Substance: FLUOROURACIL\LEUCOVORIN CALCIUM\OXALIPLATIN
  7. Diphenoxylate atropine [Concomitant]
  8. GABAPENTIN [Concomitant]
     Active Substance: GABAPENTIN
  9. VITAMIN B12 [Concomitant]
     Active Substance: CYANOCOBALAMIN

REACTIONS (9)
  - Anal cancer [Unknown]
  - Neuropathy peripheral [Unknown]
  - SATB2-associated syndrome [Unknown]
  - Stomatitis [Unknown]
  - Skin discolouration [Unknown]
  - Proteinuria [Unknown]
  - Hypertension [Unknown]
  - Globulins increased [Unknown]
  - Albumin globulin ratio decreased [Unknown]
